FAERS Safety Report 10296154 (Version 2)
Quarter: 2014Q3

REPORT INFORMATION
  Report Type: Spontaneous
  Country: US (occurrence: US)
  Receive Date: 20140710
  Receipt Date: 20140821
  Transmission Date: 20150326
  Serious: Yes (Other)
  Sender: FDA-Public Use
  Company Number: US-PURDUE-USA-2014-0114484

PATIENT
  Sex: Female

DRUGS (1)
  1. BUTRANS [Suspect]
     Active Substance: BUPRENORPHINE
     Indication: PRODUCT USED FOR UNKNOWN INDICATION
     Dosage: 5 MCG/HR, WEEKLY
     Route: 062
     Dates: start: 20140531

REACTIONS (7)
  - Application site pain [Unknown]
  - Application site papules [Unknown]
  - Product adhesion issue [Unknown]
  - Cataract [Unknown]
  - Oxygen saturation decreased [Unknown]
  - Vision blurred [Unknown]
  - Dyspnoea [Unknown]
